FAERS Safety Report 5093996-9 (Version None)
Quarter: 2006Q3

REPORT INFORMATION
  Report Type: 
  Country: None (occurrence: None)
  Receive Date: 20060728
  Receipt Date: 20060606
  Transmission Date: 20061208
  Serious: No
  Sender: FDA-Public Use
  Company Number: 253882

PATIENT
  Age: 59 Year
  Sex: Female
  Weight: 108.8 kg

DRUGS (3)
  1. LEVEMIR [Suspect]
     Indication: INSULIN-REQUIRING TYPE II DIABETES MELLITUS
     Dosage: 10 IU, QD, SUBCUTANEOUS
     Route: 058
     Dates: start: 20060602
  2. NITROFURANTOIN [Concomitant]
  3. LISINOPRIL [Concomitant]

REACTIONS (2)
  - CHILLS [None]
  - FEELING COLD [None]
